FAERS Safety Report 4544514-2 (Version None)
Quarter: 2004Q4

REPORT INFORMATION
  Report Type: 
  Country: None (occurrence: None)
  Receive Date: 20041230
  Receipt Date: 20041216
  Transmission Date: 20050328
  Serious: Yes (Other)
  Sender: FDA-Public Use
  Company Number: 2003-05700

PATIENT
  Age: 54 Year
  Sex: Male
  Weight: 79.5 kg

DRUGS (4)
  1. ADEFOVIR DIPIVOXIL (ADEFOVIR DIPIVOXIL) [Suspect]
     Indication: HEPATITIS B
     Dosage: 10 MG, ONCE A DAY, ORAL
     Route: 048
     Dates: start: 20030512, end: 20030624
  2. ADEFOVIR DIPIVOXIL (ADEFOVIR DIPIVOXIL) [Suspect]
     Indication: HEPATITIS B
     Dosage: 10 MG, ONCE A DAY, ORAL
     Route: 048
     Dates: start: 20030626
  3. VITAMIN E [Concomitant]
  4. CALCIUM (CALCIUM) [Concomitant]

REACTIONS (4)
  - DIABETES MELLITUS NON-INSULIN-DEPENDENT [None]
  - HAEMOGLOBIN URINE PRESENT [None]
  - RED BLOOD CELLS URINE POSITIVE [None]
  - WHITE BLOOD CELLS URINE POSITIVE [None]
